FAERS Safety Report 5271292-4 (Version None)
Quarter: 2007Q1

REPORT INFORMATION
  Report Type: 
  Country: None (occurrence: None)
  Receive Date: 20070309
  Receipt Date: 20070223
  Transmission Date: 20070707
  Serious: Yes (Other)
  Sender: FDA-Public Use
  Company Number: WSDF_00566

PATIENT
  Age: 26 Year
  Sex: Female
  Weight: 75.2971 kg

DRUGS (1)
  1. WINRHO SDF [Suspect]
     Indication: RHESUS HAEMOLYTIC DISEASE OF NEWBORN
     Dosage: 300 MCG ONCE
     Dates: start: 20060323, end: 20060323

REACTIONS (2)
  - ANTIBODY TEST POSITIVE [None]
  - DRUG EXPOSURE DURING PREGNANCY [None]
